FAERS Safety Report 9092523 (Version 1)
Quarter: 2013Q1

REPORT INFORMATION
  Report Type: Report from Study
  Country: US (occurrence: US)
  Receive Date: 20130131
  Receipt Date: 20130131
  Transmission Date: 20140127
  Serious: No
  Sender: FDA-Public Use
  Company Number: US-ABBOTT-12P-163-1022384-00

PATIENT
  Sex: Female

DRUGS (1)
  1. HUMIRA [Suspect]
     Indication: CROHN^S DISEASE
     Route: 058
     Dates: start: 201208

REACTIONS (7)
  - Rhinorrhoea [Unknown]
  - Respiratory tract congestion [Unknown]
  - Chills [Unknown]
  - Hot flush [Unknown]
  - Pain in extremity [Not Recovered/Not Resolved]
  - Bronchitis [Unknown]
  - Urinary tract infection [Unknown]
